FAERS Safety Report 7206792-0 (Version None)
Quarter: 2011Q1

REPORT INFORMATION
  Report Type: 
  Country: None (occurrence: None)
  Receive Date: 20110103
  Receipt Date: 20101224
  Transmission Date: 20110831
  Serious: Yes (Other)
  Sender: FDA-Public Use
  Company Number: RU-ABBOTT-10P-251-0693947-00

PATIENT
  Age: 42 Year
  Sex: Male

DRUGS (2)
  1. FINLEPSIN [Concomitant]
     Indication: PRODUCT USED FOR UNKNOWN INDICATION
  2. DEPAKENE [Suspect]
     Indication: EPILEPSY
     Route: 048
     Dates: start: 20101204, end: 20101213

REACTIONS (2)
  - FACE INJURY [None]
  - CONVULSION [None]
